FAERS Safety Report 21917379 (Version 3)
Quarter: 2023Q4

REPORT INFORMATION
  Report Type: Spontaneous
  Country: US (occurrence: US)
  Receive Date: 20230126
  Receipt Date: 20231109
  Transmission Date: 20240110
  Serious: No
  Sender: FDA-Public Use
  Company Number: US-KARYOPHARM-2022KPT001422

PATIENT

DRUGS (6)
  1. XPOVIO [Suspect]
     Active Substance: SELINEXOR
     Indication: Plasma cell myeloma
     Dosage: 60 MG, WEEKLY
     Route: 048
     Dates: start: 20220513
  2. DEXAMETHASONE [Concomitant]
     Active Substance: DEXAMETHASONE
  3. OLANZAPINE [Concomitant]
     Active Substance: OLANZAPINE
  4. ONDANSETRON [Concomitant]
     Active Substance: ONDANSETRON
  5. VELCADE [Concomitant]
     Active Substance: BORTEZOMIB
  6. XGEVA [Concomitant]
     Active Substance: DENOSUMAB

REACTIONS (3)
  - Salivary hypersecretion [Unknown]
  - Plasma cell myeloma [Unknown]
  - Product dose omission issue [Unknown]

NARRATIVE: CASE EVENT DATE: 20220101
